FAERS Safety Report 7552453-8 (Version None)
Quarter: 2011Q2

REPORT INFORMATION
  Report Type: 
  Country: None (occurrence: None)
  Receive Date: 20110616
  Receipt Date: 20110614
  Transmission Date: 20111010
  Serious: Yes (Other)
  Sender: FDA-Public Use
  Company Number: US-PFIZER INC-2011131220

PATIENT

DRUGS (1)
  1. CHANTIX [Suspect]
     Dosage: UNK

REACTIONS (1)
  - AMNESIA [None]
